FAERS Safety Report 6309003-3 (Version None)
Quarter: 2009Q3

REPORT INFORMATION
  Report Type: 
  Country: None (occurrence: None)
  Receive Date: 20090813
  Receipt Date: 20090805
  Transmission Date: 20100115
  Serious: Yes (Hospitalization)
  Sender: FDA-Public Use
  Company Number: SE-B.I. PHARMACEUTICALS,INC./RIDGEFIELD-2009-SW-00162SW

PATIENT
  Sex: Male

DRUGS (9)
  1. MOBIC [Suspect]
     Indication: ARTHRALGIA
     Route: 048
  2. SIMVASTATIN [Concomitant]
  3. GLUKOSAMIN [Concomitant]
  4. KARVEDILOL [Concomitant]
  5. FUCITHALMIC EYE OINTMENT 1 % [Concomitant]
     Dosage: EYE OINTMENT 1 %
  6. TROMBYL TABLET 75 MG [Concomitant]
  7. FUROSEMID [Concomitant]
  8. LEVAXIN TABLET 25 MIKROG [Concomitant]
  9. NSAID [Concomitant]
     Indication: PAIN

REACTIONS (9)
  - AORTIC STENOSIS [None]
  - CARDIAC FAILURE [None]
  - CARDIOMEGALY [None]
  - DYSPNOEA [None]
  - OEDEMA PERIPHERAL [None]
  - PLEURAL EFFUSION [None]
  - RENAL FAILURE [None]
  - VASODILATATION [None]
  - VENTRICULAR HYPERTROPHY [None]
